FAERS Safety Report 13090381 (Version 1)
Quarter: 2017Q1

REPORT INFORMATION
  Report Type: Spontaneous
  Country: US (occurrence: US)
  Receive Date: 20170105
  Receipt Date: 20170105
  Transmission Date: 20170428
  Serious: No
  Sender: FDA-Public Use
  Company Number: US-ENDO PHARMACEUTICALS INC.-2016-003820

PATIENT
  Sex: Male
  Weight: 81.72 kg

DRUGS (3)
  1. FORTESTA [Suspect]
     Active Substance: TESTOSTERONE
     Route: 061
     Dates: end: 201603
  2. FORTESTA [Suspect]
     Active Substance: TESTOSTERONE
     Indication: BLOOD TESTOSTERONE DECREASED
     Route: 061
     Dates: start: 201508
  3. FORTESTA [Suspect]
     Active Substance: TESTOSTERONE
     Route: 061
     Dates: start: 201603

REACTIONS (3)
  - Inappropriate schedule of drug administration [Unknown]
  - Blood testosterone decreased [Unknown]
  - Drug dose omission [Unknown]
